FAERS Safety Report 10017702 (Version 2)
Quarter: 2014Q1

REPORT INFORMATION
  Report Type: Spontaneous
  Country: US (occurrence: US)
  Receive Date: 20140318
  Receipt Date: 20140318
  Transmission Date: 20141002
  Serious: Yes (Other)
  Sender: FDA-Public Use
  Company Number: US-BRISTOL-MYERS SQUIBB COMPANY-17434093

PATIENT
  Age: 60 Year
  Sex: Male

DRUGS (9)
  1. ERBITUX [Suspect]
     Indication: SQUAMOUS CELL CARCINOMA
     Dosage: LOADING DOSE 250 MG EQUAL TO 520 MG
     Route: 042
     Dates: start: 20130124, end: 20130227
  2. BENADRYL [Concomitant]
  3. ZOFRAN [Concomitant]
  4. LORAZEPAM [Concomitant]
     Route: 048
  5. MVI [Concomitant]
  6. LACTULOSE [Concomitant]
  7. LISINOPRIL [Concomitant]
  8. REGLAN [Concomitant]
  9. CHLOR-TRIMETON [Concomitant]

REACTIONS (1)
  - Hypersensitivity [Recovered/Resolved]
